FAERS Safety Report 23763582 (Version 2)
Quarter: 2024Q2

REPORT INFORMATION
  Report Type: Report from Study
  Country: CA (occurrence: CA)
  Receive Date: 20240419
  Receipt Date: 20240531
  Transmission Date: 20240715
  Serious: Yes (Death, Hospitalization, Other)
  Sender: FDA-Public Use
  Company Number: CA-Amarin Pharma  Inc-2024AMR000169

PATIENT
  Age: 83 Year
  Sex: Male

DRUGS (2)
  1. VASCEPA [Suspect]
     Active Substance: ICOSAPENT ETHYL
     Indication: Cardiovascular event prophylaxis
     Dates: start: 20240408
  2. CRESTOR [Concomitant]
     Active Substance: ROSUVASTATIN CALCIUM
     Indication: Product used for unknown indication

REACTIONS (5)
  - Death [Fatal]
  - Viral infection [Recovering/Resolving]
  - Dyspnoea [Recovering/Resolving]
  - Gastrointestinal tube insertion [Unknown]
  - Aspiration [Unknown]

NARRATIVE: CASE EVENT DATE: 20240101
